FAERS Safety Report 6711262-X (Version None)
Quarter: 2010Q2

REPORT INFORMATION
  Report Type: 
  Country: None (occurrence: None)
  Receive Date: 20100505
  Receipt Date: 20100426
  Transmission Date: 20101027
  Serious: Yes (Disabling)
  Sender: FDA-Public Use
  Company Number: JP-BRISTOL-MYERS SQUIBB COMPANY-14812127

PATIENT
  Age: 72 Year
  Sex: Male
  Weight: 63 kg

DRUGS (5)
  1. ERBITUX [Suspect]
     Indication: COLON CANCER
     Dosage: 06-06NOV08:600MG;400MG,13NOV-29DEC08(46DAYS);320MG,27JAN09-ONG) RECENT INF (23 RD) ON 11-JUN-2009
     Route: 042
     Dates: start: 20081106
  2. IRINOTECAN HCL [Suspect]
     Indication: COLON CANCER
     Dosage: 06NOV08-04JUN09,240MG(1IN2 WK);30JUL09-ONG,240MG(1IN3 WK) SKIPPED:20+27APR09;13TH INF:04JUN09.
     Route: 042
     Dates: start: 20081106
  3. FLUOROURACIL [Suspect]
     Indication: COLON CANCER
     Dosage: 6NO08-4JUN09,640MG,3800MG(1IN2W),30JUL09-UNK,640MG;30JUL09-UNK,3800MG(1IN3W),IV SKIPPED:20+27APR09.
     Route: 042
     Dates: start: 20081106
  4. LEUCOVORIN CALCIUM [Suspect]
     Indication: COLON CANCER
     Dosage: SKIPPPED ON 20+27APR09. RECENT 13 TH INF ON 04-JUN-2009. 06NOV08-04JUN09,325MG 30JUL09-UNK,325MG
     Route: 042
     Dates: start: 20081106
  5. DECADRON [Concomitant]
     Route: 042
     Dates: start: 20081106

REACTIONS (3)
  - ACNE [None]
  - DECREASED APPETITE [None]
  - HYPOAESTHESIA ORAL [None]
